FAERS Safety Report 4819060-9 (Version None)
Quarter: 2005Q4

REPORT INFORMATION
  Report Type: 
  Country: None (occurrence: None)
  Receive Date: 20051102
  Receipt Date: 20051102
  Transmission Date: 20060501
  Serious: No
  Sender: FDA-Public Use
  Company Number: None

PATIENT
  Age: 13 Year
  Sex: Male
  Weight: 62 kg

DRUGS (3)
  1. ABILIFY [Suspect]
     Indication: PSYCHOTIC DISORDER
     Dosage: 10 MG   DAILY   PO
     Route: 048
     Dates: start: 20050330
  2. CONCERTA [Concomitant]
  3. DIPHENHYDRAMINE HCL [Concomitant]

REACTIONS (1)
  - DYSTONIA [None]
